FAERS Safety Report 4994243-6 (Version None)
Quarter: 2006Q2

REPORT INFORMATION
  Report Type: 
  Country: None (occurrence: None)
  Receive Date: 20060503
  Receipt Date: 20060410
  Transmission Date: 20061013
  Serious: Yes (Other)
  Sender: FDA-Public Use
  Company Number: 6022199

PATIENT

DRUGS (2)
  1. AMNESTEEM [Suspect]
     Dosage: 40 MG QAM, 20 MG QPM, 2 IN 1 D, ORAL
     Route: 048
     Dates: start: 20060105, end: 20060117
  2. CLARAVIS [Suspect]
     Dosage: 60 MG, 2 IN 1 D, ORAL
     Route: 048
     Dates: start: 20051206, end: 20060104

REACTIONS (3)
  - BLOOD CHOLESTEROL INCREASED [None]
  - BLOOD TRIGLYCERIDES INCREASED [None]
  - LABORATORY TEST ABNORMAL [None]
